FAERS Safety Report 19597909 (Version 3)
Quarter: 2022Q2

REPORT INFORMATION
  Report Type: Report from Study
  Country: US (occurrence: US)
  Receive Date: 20210723
  Receipt Date: 20220418
  Transmission Date: 20220721
  Serious: Yes (Hospitalization, Other)
  Sender: FDA-Public Use
  Company Number: US-ABBVIE-21K-163-3999440-00

PATIENT
  Sex: Female

DRUGS (3)
  1. IMBRUVICA [Suspect]
     Active Substance: IBRUTINIB
     Indication: Product used for unknown indication
     Route: 048
     Dates: start: 202106, end: 20210702
  2. IMBRUVICA [Suspect]
     Active Substance: IBRUTINIB
     Route: 048
     Dates: start: 20211109
  3. IMBRUVICA [Suspect]
     Active Substance: IBRUTINIB
     Route: 048

REACTIONS (12)
  - Lymphocyte adoptive therapy [Recovered/Resolved]
  - Dry skin [Unknown]
  - Alopecia [Unknown]
  - Madarosis [Unknown]
  - Choking sensation [Recovered/Resolved]
  - Lymphadenopathy [Recovered/Resolved]
  - Retching [Recovered/Resolved]
  - Full blood count abnormal [Recovering/Resolving]
  - Hospitalisation [Recovered/Resolved]
  - Nausea [Recovered/Resolved]
  - Nausea [Recovering/Resolving]
  - Fatigue [Recovering/Resolving]

NARRATIVE: CASE EVENT DATE: 20210101
